FAERS Safety Report 10674146 (Version 2)
Quarter: 2015Q1

REPORT INFORMATION
  Report Type: Spontaneous
  Country: US (occurrence: US)
  Receive Date: 20141224
  Receipt Date: 20150105
  Transmission Date: 20150720
  Serious: Yes (Other)
  Sender: FDA-Public Use
  Company Number: US-AMGEN-USASP2014099347

PATIENT
  Age: 57 Year
  Sex: Male
  Weight: 145.13 kg

DRUGS (8)
  1. ENBREL [Suspect]
     Active Substance: ETANERCEPT
     Indication: PSORIATIC ARTHROPATHY
  2. TOPICORT                           /00370301/ [Concomitant]
     Dosage: APPLY BID 5/7 THREE MONTHS
     Dates: start: 20060908
  3. ENBREL [Suspect]
     Active Substance: ETANERCEPT
     Indication: PSORIASIS
     Dosage: 25 MG, 2 TIMES/WK
     Route: 058
     Dates: start: 20040727, end: 20070725
  4. ULTRAVATE                          /00008504/ [Concomitant]
     Dosage: UNK
  5. CLOBETASOL [Concomitant]
     Active Substance: CLOBETASOL
     Dosage: UNK
     Dates: start: 20050120
  6. PSORCON [Concomitant]
     Active Substance: DIFLORASONE DIACETATE
     Dosage: 60 GM, 6 REFILL APPLY ON THRUSDAY
     Dates: start: 20050120
  7. CETAPHIL                           /00498501/ [Concomitant]
     Dosage: UNK
     Dates: start: 20050120
  8. DESONIDE. [Concomitant]
     Active Substance: DESONIDE
     Dosage: 40 G, AS NECESSARY
     Dates: start: 20050408

REACTIONS (20)
  - Bronchitis chronic [Recovered/Resolved]
  - Tooth extraction [Unknown]
  - Asthenia [Unknown]
  - Sinusitis [Unknown]
  - Drug effect decreased [Unknown]
  - Arthralgia [Recovered/Resolved]
  - Psoriatic arthropathy [Not Recovered/Not Resolved]
  - Dysphonia [Unknown]
  - Oropharyngeal pain [Recovered/Resolved]
  - Nasopharyngitis [Recovered/Resolved]
  - Malaise [Recovered/Resolved]
  - Gastrooesophageal reflux disease [Unknown]
  - Pneumonia [Recovered/Resolved]
  - Influenza like illness [Unknown]
  - Rash erythematous [Unknown]
  - Pruritus [Unknown]
  - Increased appetite [Unknown]
  - Upper respiratory tract infection [Recovered/Resolved]
  - Psoriasis [Unknown]
  - Laryngitis [Unknown]

NARRATIVE: CASE EVENT DATE: 20040826
